FAERS Safety Report 5419149-X (Version None)
Quarter: 2007Q3

REPORT INFORMATION
  Report Type: 
  Country: None (occurrence: None)
  Receive Date: 20070820
  Receipt Date: 20070809
  Transmission Date: 20080115
  Serious: Yes (Disabling)
  Sender: FDA-Public Use
  Company Number: CA-BAYER-200713638GDS

PATIENT
  Age: 45 Year
  Sex: Female

DRUGS (1)
  1. AVELOX [Suspect]
     Indication: DRUG USE FOR UNKNOWN INDICATION
     Dosage: TOTAL DAILY DOSE: 400 MG  UNIT DOSE: 400 MG
     Route: 048
     Dates: start: 20060413, end: 20060423

REACTIONS (5)
  - MENORRHAGIA [None]
  - SENSATION OF BLOOD FLOW [None]
  - TACHYCARDIA [None]
  - VARICOSE VEIN [None]
  - VASODILATATION [None]
